FAERS Safety Report 4348253-2 (Version None)
Quarter: 2004Q2

REPORT INFORMATION
  Report Type: 
  Country: None (occurrence: None)
  Receive Date: 20040422
  Receipt Date: 20040406
  Transmission Date: 20050107
  Serious: Yes (Other)
  Sender: FDA-Public Use
  Company Number: 2004-DE-00459GL

PATIENT
  Age: 61 Year
  Sex: Female

DRUGS (2)
  1. TELMISARTAN (TELMISARTAN) (TA)  (TELMISARTAN) [Suspect]
     Indication: HYPERTENSION
     Dosage: PO
     Route: 048
     Dates: start: 20030201, end: 20040201
  2. THYROTROPHIN (THYROTROPHIN) [Concomitant]

REACTIONS (5)
  - BLOOD ALKALINE PHOSPHATASE INCREASED [None]
  - BONE PAIN [None]
  - INSOMNIA [None]
  - PAIN IN EXTREMITY [None]
  - SPINAL X-RAY ABNORMAL [None]
